FAERS Safety Report 8904862 (Version 1)
Quarter: 2012Q4

REPORT INFORMATION
  Report Type: 
  Country: US (occurrence: US)
  Receive Date: 20121109
  Receipt Date: 20121109
  Transmission Date: 20130627
  Serious: Yes (Other)
  Sender: FDA-Public Use
  Company Number: US-ASTRAZENECA-2012SE83693

PATIENT
  Age: 50 Year
  Sex: Female

DRUGS (2)
  1. SYMBICORT PMDI [Suspect]
     Route: 055
  2. TOPROL XL [Suspect]
     Route: 048

REACTIONS (3)
  - Breast cancer female [Unknown]
  - Colorectal cancer [Unknown]
  - Cervical vertebral fracture [Unknown]
